FAERS Safety Report 10098549 (Version 2)
Quarter: 2016Q3

REPORT INFORMATION
  Report Type: Spontaneous
  Country: FR (occurrence: FR)
  Receive Date: 20140423
  Receipt Date: 20160815
  Transmission Date: 20161108
  Serious: Yes (Hospitalization)
  Sender: FDA-Public Use
  Company Number: FR-TEVA-476079ISR

PATIENT
  Age: 35 Year
  Sex: Female

DRUGS (7)
  1. MIRENA [Suspect]
     Active Substance: LEVONORGESTREL
     Indication: CONTRACEPTION
     Dosage: 20 MICROGRAM DAILY; PREVIOUS INTRAUTERINE DEVICE REMOVED IN OCT-2008
     Route: 015
     Dates: start: 20131002, end: 20131230
  2. DIVARIUS [Suspect]
     Active Substance: PAROXETINE MESYLATE
     Dosage: RE STARTED BETWEEN MAR-2014 AND AUG-2014
     Route: 048
     Dates: start: 2014, end: 20160611
  3. LEVOCETIRIZINE RATIOPHARM [Suspect]
     Active Substance: LEVOCETIRIZINE
     Indication: SEASONAL ALLERGY
     Dosage: 5 MILLIGRAM DAILY; PRECISE SCHEMA: 3 MONTHS PER YEAR, AT THE END OF THE YEAR
     Route: 048
     Dates: start: 20130906, end: 20131218
  4. DIVARIUS [Suspect]
     Active Substance: PAROXETINE MESYLATE
     Indication: DEPRESSION
     Dosage: 20 MILLIGRAM DAILY; PREVIOUS TREATMENT: 6 TO 8 CONSECUTIVE MONTHS IN 2007
     Route: 048
     Dates: start: 20130906, end: 20131218
  5. PAROXETINE ARROW [Suspect]
     Active Substance: PAROXETINE
     Indication: DEPRESSION
     Dosage: 20 MILLIGRAM DAILY;
     Route: 048
     Dates: start: 20131218, end: 20140206
  6. MIRENA [Suspect]
     Active Substance: LEVONORGESTREL
     Route: 015
     Dates: start: 20150722, end: 20160531
  7. TIGREAT [Concomitant]
     Active Substance: FROVATRIPTAN
     Dosage: IN CASE OF MIGRAINE ATTACK

REACTIONS (3)
  - Microangiopathic haemolytic anaemia [Unknown]
  - Haematoma [None]
  - Thrombotic thrombocytopenic purpura [Unknown]

NARRATIVE: CASE EVENT DATE: 20131216
